FAERS Safety Report 8244702-8 (Version None)
Quarter: 2012Q1

REPORT INFORMATION
  Report Type: 
  Country: None (occurrence: None)
  Receive Date: 20120329
  Receipt Date: 20110204
  Transmission Date: 20120608
  Serious: No
  Sender: FDA-Public Use
  Company Number: US-MYLANLABS-2011S1002588

PATIENT
  Age: 84 Year
  Sex: Female

DRUGS (3)
  1. FENTANYL-100 [Suspect]
     Indication: PAIN
     Dosage: CHANGED Q72H.
     Route: 062
     Dates: start: 20110101
  2. ASPIRIN [Concomitant]
  3. AMLODIPINE [Concomitant]

REACTIONS (2)
  - BLOOD URINE PRESENT [None]
  - DIZZINESS [None]
